FAERS Safety Report 13654025 (Version 1)
Quarter: 2017Q2

REPORT INFORMATION
  Report Type: Spontaneous
  Country: SA (occurrence: SA)
  Receive Date: 20170614
  Receipt Date: 20170614
  Transmission Date: 20170830
  Serious: Yes (Life-Threatening, Other)
  Sender: FDA-Public Use
  Company Number: SA-BAUSCH-BL-2017-018738

PATIENT
  Age: 11 Year
  Sex: Male

DRUGS (5)
  1. DOXORUBICIN [Suspect]
     Active Substance: DOXORUBICIN
     Indication: BURKITT^S LYMPHOMA
     Route: 065
  2. CYCLOPHOSPHAMIDE. [Suspect]
     Active Substance: CYCLOPHOSPHAMIDE
     Indication: BURKITT^S LYMPHOMA
     Route: 065
  3. METHOTREXATE. [Suspect]
     Active Substance: METHOTREXATE
     Indication: BURKITT^S LYMPHOMA
     Route: 065
  4. PREDNISOLONE. [Suspect]
     Active Substance: PREDNISOLONE
     Indication: BURKITT^S LYMPHOMA
     Route: 065
  5. VINCRISTINE [Suspect]
     Active Substance: VINCRISTINE
     Indication: BURKITT^S LYMPHOMA
     Route: 065

REACTIONS (14)
  - Neutropenia [Recovered/Resolved]
  - Hepatotoxicity [Recovered/Resolved]
  - Cholestasis [Recovered/Resolved]
  - Affect lability [Recovered/Resolved]
  - Drug clearance decreased [Recovered/Resolved]
  - Toxicity to various agents [Recovered/Resolved]
  - Neutropenic colitis [Recovered/Resolved]
  - Depression [Recovered/Resolved]
  - Mucosal toxicity [Recovered/Resolved]
  - Skin toxicity [Recovered/Resolved]
  - Thrombocytopenia [Recovered/Resolved]
  - Infection [Recovered/Resolved]
  - Endocarditis bacterial [Recovered/Resolved]
  - Bone marrow toxicity [Recovered/Resolved]
